FAERS Safety Report 11221847 (Version 1)
Quarter: 2015Q2

REPORT INFORMATION
  Report Type: Spontaneous
  Country: US (occurrence: US)
  Receive Date: 20150626
  Receipt Date: 20150626
  Transmission Date: 20150821
  Serious: No
  Sender: FDA-Public Use
  Company Number: US-BAYER-2015-361698

PATIENT
  Sex: Female

DRUGS (1)
  1. MIRALAX [Suspect]
     Active Substance: POLYETHYLENE GLYCOL 3350
     Dosage: 1 DOSE, BID
     Route: 048
     Dates: end: 20150617

REACTIONS (3)
  - Product use issue [Unknown]
  - Faecal incontinence [None]
  - Product use issue [Unknown]

NARRATIVE: CASE EVENT DATE: 20150616
